FAERS Safety Report 8381636-2 (Version None)
Quarter: 2012Q2

REPORT INFORMATION
  Report Type: 
  Country: None (occurrence: None)
  Receive Date: 20120524
  Receipt Date: 20120515
  Transmission Date: 20120825
  Serious: No
  Sender: FDA-Public Use
  Company Number: US-ASTRAZENECA-2011SE51778

PATIENT
  Age: 56 Year
  Sex: Male

DRUGS (4)
  1. CRESTOR [Suspect]
     Indication: ANGINA PECTORIS
     Route: 048
  2. COREG [Suspect]
     Route: 065
     Dates: end: 20110401
  3. CRESTOR [Suspect]
     Indication: MYOCARDIAL INFARCTION
     Route: 048
  4. BLOOD GLUCOSE MEDICATION [Concomitant]

REACTIONS (7)
  - DIVERTICULITIS [None]
  - VOMITING [None]
  - DRUG INEFFECTIVE FOR UNAPPROVED INDICATION [None]
  - WEIGHT DECREASED [None]
  - FOOD INTOLERANCE [None]
  - ABDOMINAL PAIN [None]
  - OFF LABEL USE [None]
